FAERS Safety Report 16397761 (Version 2)
Quarter: 2019Q4

REPORT INFORMATION
  Report Type: Spontaneous
  Country: US (occurrence: US)
  Receive Date: 20190606
  Receipt Date: 20191017
  Transmission Date: 20200122
  Serious: Yes (Other)
  Sender: FDA-Public Use
  Company Number: US-SUN PHARMACEUTICAL INDUSTRIES LTD-2019R1-209998

PATIENT
  Age: 77 Year
  Sex: Female

DRUGS (1)
  1. DIGOXIN. [Suspect]
     Active Substance: DIGOXIN
     Indication: CARDIAC FAILURE ACUTE
     Dosage: 40 MILLIGRAM, UNK
     Route: 065

REACTIONS (4)
  - Rib fracture [Unknown]
  - Toxicity to various agents [Unknown]
  - Bradycardia [Unknown]
  - Acute kidney injury [Unknown]
